FAERS Safety Report 20055211 (Version 1)
Quarter: 2021Q4

REPORT INFORMATION
  Report Type: Other
  Country: None (occurrence: TW)
  Receive Date: 20211110
  Receipt Date: 20211110
  Transmission Date: 20220303
  Serious: Yes (Hospitalization, Disabling)
  Sender: FDA-Public Use
  Company Number: TW-B.Braun Medical Inc.-2121724

PATIENT
  Age: 57 Year
  Sex: Female

DRUGS (1)
  1. METRONIDAZOLE [Suspect]
     Active Substance: METRONIDAZOLE
     Indication: Vaginal infection

REACTIONS (2)
  - Optic neuropathy [Not Recovered/Not Resolved]
  - Myelitis [Not Recovered/Not Resolved]
